FAERS Safety Report 14964900 (Version 4)
Quarter: 2020Q1

REPORT INFORMATION
  Report Type: Report from Study
  Country: JP (occurrence: JP)
  Receive Date: 20180601
  Receipt Date: 20200217
  Transmission Date: 20200409
  Serious: Yes (Death, Life-Threatening)
  Sender: FDA-Public Use
  Company Number: JP-AMGEN-JPNSP2018074898

PATIENT
  Age: 44 Year
  Sex: Female

DRUGS (17)
  1. CINACALCET HCL [Suspect]
     Active Substance: CINACALCET HYDROCHLORIDE
     Indication: HYPERCALCAEMIA
     Dosage: 25 MILLIGRAM, QD
     Route: 048
     Dates: start: 20180111, end: 20180117
  2. TRAMAL [Concomitant]
     Active Substance: TRAMADOL
     Indication: EXTRADURAL NEOPLASM
     Dosage: 50 MG
     Route: 048
     Dates: end: 20180220
  3. LAMICTAL [Concomitant]
     Active Substance: LAMOTRIGINE
     Indication: EPILEPSY
     Dosage: 150 MG
     Route: 048
     Dates: end: 20180402
  4. SHINLUCK [Concomitant]
     Active Substance: SODIUM PICOSULFATE
     Indication: PRODUCT USED FOR UNKNOWN INDICATION
     Dosage: 10 MILLILITER
     Route: 048
     Dates: start: 20180227, end: 20180402
  5. CELECOX [Concomitant]
     Active Substance: CELECOXIB
     Indication: EXTRADURAL NEOPLASM
     Dosage: 400 MG
     Route: 048
     Dates: end: 20180123
  6. TOFRANIL [Concomitant]
     Active Substance: IMIPRAMINE HYDROCHLORIDE
     Indication: EXTRADURAL NEOPLASM
     Dosage: 10 MG
     Route: 048
     Dates: start: 20180124, end: 20180220
  7. MEIACT [Concomitant]
     Active Substance: CEFDITOREN PIVOXIL
     Indication: PRODUCT USED FOR UNKNOWN INDICATION
     Dosage: 300 MG
     Route: 048
     Dates: start: 20180327, end: 20180331
  8. KENEI G [Concomitant]
     Active Substance: GLYCERIN
     Indication: PRODUCT USED FOR UNKNOWN INDICATION
     Dosage: 60 ML
     Route: 054
     Dates: start: 20180214, end: 20180402
  9. ASPARA POTASSIUM [Concomitant]
     Active Substance: POTASSIUM ASPARTATE
     Indication: PRODUCT USED FOR UNKNOWN INDICATION
     Dosage: 1.8 G
     Route: 048
     Dates: start: 20180202, end: 20180402
  10. WARFARIN [Concomitant]
     Active Substance: WARFARIN
     Indication: ANTIPHOSPHOLIPID SYNDROME
     Dosage: 1-2.5 MG
     Route: 048
     Dates: end: 20180402
  11. LANDSEN [Concomitant]
     Active Substance: CLONAZEPAM
     Indication: EPILEPSY
     Dosage: 1.0 MG
     Route: 048
     Dates: end: 20180402
  12. CINACALCET HCL [Suspect]
     Active Substance: CINACALCET HYDROCHLORIDE
     Dosage: 25 MILLIGRAM, TID
     Route: 048
     Dates: start: 20180305, end: 20180402
  13. CINACALCET HCL [Suspect]
     Active Substance: CINACALCET HYDROCHLORIDE
     Dosage: 25 MILLIGRAM, BID
     Route: 048
     Dates: start: 20180118, end: 20180304
  14. NEXIUM [Concomitant]
     Active Substance: ESOMEPRAZOLE MAGNESIUM
     Indication: PRODUCT USED FOR UNKNOWN INDICATION
     Dosage: 20 MILLIGRAM
     Route: 048
     Dates: end: 20180402
  15. MAGMITT [Concomitant]
     Active Substance: MAGNESIUM OXIDE
     Indication: PRODUCT USED FOR UNKNOWN INDICATION
     Dosage: 750 MG
     Route: 048
     Dates: end: 20180402
  16. ENSURE H [Concomitant]
     Active Substance: CARBOHYDRATES\FATTY ACIDS\MINERALS\PROTEIN\VITAMINS
     Indication: PRODUCT USED FOR UNKNOWN INDICATION
     Dosage: 750 ML
     Route: 048
     Dates: end: 20180123
  17. METHYCOBAL [Concomitant]
     Active Substance: METHYLCOBALAMIN
     Indication: EXTRADURAL NEOPLASM
     Dosage: 1500 UG
     Route: 048
     Dates: start: 20180124, end: 20180402

REACTIONS (4)
  - Subarachnoid haemorrhage [Fatal]
  - Blood creatinine increased [Not Recovered/Not Resolved]
  - Dehydration [Not Recovered/Not Resolved]
  - Urinary tract infection [Recovered/Resolved]

NARRATIVE: CASE EVENT DATE: 20180113
